FAERS Safety Report 5606502-4 (Version None)
Quarter: 2008Q1

REPORT INFORMATION
  Report Type: 
  Country: None (occurrence: None)
  Receive Date: 20080129
  Receipt Date: 20080122
  Transmission Date: 20080703
  Serious: Yes (Other)
  Sender: FDA-Public Use
  Company Number: A0704602A

PATIENT
  Age: 49 Year
  Sex: Female

DRUGS (10)
  1. ADVAIR DISKUS 100/50 [Suspect]
     Indication: ASTHMA
     Route: 055
     Dates: start: 20060901
  2. XOPENEX [Concomitant]
  3. OMEPRAZOLE [Concomitant]
  4. ESTRADIOL [Concomitant]
  5. METFORMIN HCL [Concomitant]
  6. ASPIRIN [Concomitant]
  7. WELLBUTRIN XL [Concomitant]
     Dosage: 150MG UNKNOWN
     Route: 048
     Dates: start: 20070401
  8. NASONEX [Concomitant]
  9. ASTELIN [Concomitant]
  10. VYTORIN [Concomitant]

REACTIONS (11)
  - BACK PAIN [None]
  - BRONCHITIS [None]
  - COLLAPSE OF LUNG [None]
  - HAEMOPTYSIS [None]
  - LUNG INFECTION [None]
  - PLEURITIC PAIN [None]
  - PNEUMONIA [None]
  - PRODUCTIVE COUGH [None]
  - PYREXIA [None]
  - SINUSITIS [None]
  - THERAPEUTIC RESPONSE UNEXPECTED [None]
